FAERS Safety Report 21219290 (Version 2)
Quarter: 2022Q3

REPORT INFORMATION
  Report Type: Spontaneous
  Country: US (occurrence: None)
  Receive Date: 20220817
  Receipt Date: 20220822
  Transmission Date: 20221026
  Serious: No
  Sender: FDA-Public Use
  Company Number: US-Inventia-000197

PATIENT
  Age: 81 Year
  Sex: Female

DRUGS (2)
  1. TELMISARTAN [Suspect]
     Active Substance: TELMISARTAN
     Indication: Hypertension
     Dosage: 40 MG TABLETS
  2. TELMISARTAN [Suspect]
     Active Substance: TELMISARTAN
     Indication: Cardiac disorder
     Dosage: 40 MG TABLETS

REACTIONS (1)
  - Product physical issue [Unknown]
